FAERS Safety Report 24055850 (Version 1)
Quarter: 2024Q3

REPORT INFORMATION
  Report Type: Spontaneous
  Country: US (occurrence: None)
  Receive Date: 20240703
  Receipt Date: 20240703
  Transmission Date: 20241017
  Serious: Yes (Life-Threatening, Hospitalization)
  Sender: Public
  Company Number: None

PATIENT
  Age: 60 Year
  Sex: Female
  Weight: 108.8 kg

DRUGS (4)
  1. EXPAREL [Suspect]
     Active Substance: BUPIVACAINE
     Dosage: 266 MG ONCE
     Dates: start: 20240402, end: 20240402
  2. BUPIVACAINE [Concomitant]
     Active Substance: BUPIVACAINE
  3. LIDOCAINE [Concomitant]
     Active Substance: LIDOCAINE
  4. BUPIVACAINE [Concomitant]
     Active Substance: BUPIVACAINE

REACTIONS (3)
  - Loss of consciousness [None]
  - Generalised tonic-clonic seizure [None]
  - Systemic toxicity [None]

NARRATIVE: CASE EVENT DATE: 20240402
